FAERS Safety Report 9861808 (Version 3)
Quarter: 2014Q1

REPORT INFORMATION
  Report Type: Spontaneous
  Country: US (occurrence: US)
  Receive Date: 20140203
  Receipt Date: 20140224
  Transmission Date: 20141002
  Serious: No
  Sender: FDA-Public Use
  Company Number: US-PFIZER INC-2014030127

PATIENT
  Age: 35 Year
  Sex: Female
  Weight: 81.6 kg

DRUGS (1)
  1. DEPO-PROVERA [Suspect]
     Indication: CONTRACEPTION
     Dosage: UNK, EVERY 3 MONTHS
     Dates: start: 1996

REACTIONS (6)
  - Product quality issue [Unknown]
  - Skin lesion [Unknown]
  - Feeling abnormal [Unknown]
  - Pain [Unknown]
  - Influenza [Unknown]
  - Pelvic pain [Unknown]
